FAERS Safety Report 20461097 (Version 1)
Quarter: 2022Q1

REPORT INFORMATION
  Report Type: Other
  Country: None (occurrence: CN)
  Receive Date: 20220211
  Receipt Date: 20220211
  Transmission Date: 20220424
  Serious: Yes (Death)
  Sender: FDA-Public Use
  Company Number: CN-Knight Therapeutics (USA) Inc.-2125795

PATIENT
  Age: 37 Year
  Sex: Female

DRUGS (2)
  1. IMPAVIDO [Suspect]
     Active Substance: MILTEFOSINE
     Indication: Balamuthia infection
  2. AMPHOTERICIN B [Concomitant]
     Active Substance: AMPHOTERICIN B
     Route: 037

REACTIONS (2)
  - Drug ineffective for unapproved indication [Fatal]
  - Off label use [Unknown]
